FAERS Safety Report 8309252-9 (Version None)
Quarter: 2012Q2

REPORT INFORMATION
  Report Type: 
  Country: None (occurrence: None)
  Receive Date: 20120424
  Receipt Date: 20120417
  Transmission Date: 20120825
  Serious: Yes (Hospitalization)
  Sender: FDA-Public Use
  Company Number: US-RB-039368-12

PATIENT
  Age: 46 Year
  Sex: Female

DRUGS (1)
  1. SUBOXONE [Suspect]
     Indication: PAIN
     Dosage: DOSING DETAILS NOT PROVIDED
     Route: 065

REACTIONS (3)
  - OFF LABEL USE [None]
  - HYPOAESTHESIA [None]
  - DRUG INEFFECTIVE [None]
